FAERS Safety Report 25723480 (Version 1)
Quarter: 2025Q3

REPORT INFORMATION
  Report Type: Spontaneous
  Country: EU (occurrence: EU)
  Receive Date: 20250825
  Receipt Date: 20250825
  Transmission Date: 20251020
  Serious: Yes (Hospitalization)
  Sender: MYLAN
  Company Number: None

PATIENT
  Age: 83 Year
  Sex: Female

DRUGS (40)
  1. SERTRALINE HYDROCHLORIDE [Interacting]
     Active Substance: SERTRALINE HYDROCHLORIDE
     Indication: Product used for unknown indication
     Dosage: 1 DOSAGE FORM, QD (1 TABLET / 24 H) (30 TABLETS)
     Dates: start: 20250117, end: 20250415
  2. SERTRALINE HYDROCHLORIDE [Interacting]
     Active Substance: SERTRALINE HYDROCHLORIDE
     Dosage: 1 DOSAGE FORM, QD (1 TABLET / 24 H) (30 TABLETS)
     Route: 048
     Dates: start: 20250117, end: 20250415
  3. SERTRALINE HYDROCHLORIDE [Interacting]
     Active Substance: SERTRALINE HYDROCHLORIDE
     Dosage: 1 DOSAGE FORM, QD (1 TABLET / 24 H) (30 TABLETS)
     Route: 048
     Dates: start: 20250117, end: 20250415
  4. SERTRALINE HYDROCHLORIDE [Interacting]
     Active Substance: SERTRALINE HYDROCHLORIDE
     Dosage: 1 DOSAGE FORM, QD (1 TABLET / 24 H) (30 TABLETS)
     Dates: start: 20250117, end: 20250415
  5. MIRTAZAPINE [Interacting]
     Active Substance: MIRTAZAPINE
     Indication: Product used for unknown indication
     Dosage: 0.5 DOSAGE FORM, QD (0.5 TABLET / 24 H) (30 TABLETS)
     Dates: start: 20250220, end: 20250415
  6. MIRTAZAPINE [Interacting]
     Active Substance: MIRTAZAPINE
     Dosage: 0.5 DOSAGE FORM, QD (0.5 TABLET / 24 H) (30 TABLETS)
     Route: 048
     Dates: start: 20250220, end: 20250415
  7. MIRTAZAPINE [Interacting]
     Active Substance: MIRTAZAPINE
     Dosage: 0.5 DOSAGE FORM, QD (0.5 TABLET / 24 H) (30 TABLETS)
     Route: 048
     Dates: start: 20250220, end: 20250415
  8. MIRTAZAPINE [Interacting]
     Active Substance: MIRTAZAPINE
     Dosage: 0.5 DOSAGE FORM, QD (0.5 TABLET / 24 H) (30 TABLETS)
     Dates: start: 20250220, end: 20250415
  9. INDAPAMIDE [Interacting]
     Active Substance: INDAPAMIDE
     Indication: Product used for unknown indication
     Dosage: 1 DOSAGE FORM, QD (1 TABLET / 24 H) (30 TABLETS)
     Dates: start: 20250404, end: 20250415
  10. INDAPAMIDE [Interacting]
     Active Substance: INDAPAMIDE
     Dosage: 1 DOSAGE FORM, QD (1 TABLET / 24 H) (30 TABLETS)
     Route: 048
     Dates: start: 20250404, end: 20250415
  11. INDAPAMIDE [Interacting]
     Active Substance: INDAPAMIDE
     Dosage: 1 DOSAGE FORM, QD (1 TABLET / 24 H) (30 TABLETS)
     Route: 048
     Dates: start: 20250404, end: 20250415
  12. INDAPAMIDE [Interacting]
     Active Substance: INDAPAMIDE
     Dosage: 1 DOSAGE FORM, QD (1 TABLET / 24 H) (30 TABLETS)
     Dates: start: 20250404, end: 20250415
  13. LEVOFLOXACIN [Concomitant]
     Active Substance: LEVOFLOXACIN
     Dosage: 1 DOSAGE FORM, QD (1 TABLET / 24 H) (14 TABLETS)
     Dates: start: 20250404, end: 20250416
  14. LEVOFLOXACIN [Concomitant]
     Active Substance: LEVOFLOXACIN
     Dosage: 1 DOSAGE FORM, QD (1 TABLET / 24 H) (14 TABLETS)
     Route: 048
     Dates: start: 20250404, end: 20250416
  15. LEVOFLOXACIN [Concomitant]
     Active Substance: LEVOFLOXACIN
     Dosage: 1 DOSAGE FORM, QD (1 TABLET / 24 H) (14 TABLETS)
     Route: 048
     Dates: start: 20250404, end: 20250416
  16. LEVOFLOXACIN [Concomitant]
     Active Substance: LEVOFLOXACIN
     Dosage: 1 DOSAGE FORM, QD (1 TABLET / 24 H) (14 TABLETS)
     Dates: start: 20250404, end: 20250416
  17. METOCLOPRAMIDE [Concomitant]
     Active Substance: METOCLOPRAMIDE
     Dosage: 1 DOSAGE FORM, Q8H (1 TABLET / 8 H)
     Dates: start: 20250407, end: 20250416
  18. METOCLOPRAMIDE [Concomitant]
     Active Substance: METOCLOPRAMIDE
     Dosage: 1 DOSAGE FORM, Q8H (1 TABLET / 8 H)
     Route: 048
     Dates: start: 20250407, end: 20250416
  19. METOCLOPRAMIDE [Concomitant]
     Active Substance: METOCLOPRAMIDE
     Dosage: 1 DOSAGE FORM, Q8H (1 TABLET / 8 H)
     Route: 048
     Dates: start: 20250407, end: 20250416
  20. METOCLOPRAMIDE [Concomitant]
     Active Substance: METOCLOPRAMIDE
     Dosage: 1 DOSAGE FORM, Q8H (1 TABLET / 8 H)
     Dates: start: 20250407, end: 20250416
  21. PREGABALIN [Concomitant]
     Active Substance: PREGABALIN
     Dosage: 1 DOSAGE FORM, BID (1 CAPSULE / 12 H)
     Dates: start: 20241218, end: 20250416
  22. PREGABALIN [Concomitant]
     Active Substance: PREGABALIN
     Dosage: 1 DOSAGE FORM, BID (1 CAPSULE / 12 H)
     Route: 048
     Dates: start: 20241218, end: 20250416
  23. PREGABALIN [Concomitant]
     Active Substance: PREGABALIN
     Dosage: 1 DOSAGE FORM, BID (1 CAPSULE / 12 H)
     Route: 048
     Dates: start: 20241218, end: 20250416
  24. PREGABALIN [Concomitant]
     Active Substance: PREGABALIN
     Dosage: 1 DOSAGE FORM, BID (1 CAPSULE / 12 H)
     Dates: start: 20241218, end: 20250416
  25. BROMAZEPAM [Concomitant]
     Active Substance: BROMAZEPAM
     Dosage: 1 DOSAGE FORM, QD (1 CAPSULE / 24 H)
     Dates: start: 20240221, end: 20250728
  26. BROMAZEPAM [Concomitant]
     Active Substance: BROMAZEPAM
     Dosage: 1 DOSAGE FORM, QD (1 CAPSULE / 24 H)
     Route: 048
     Dates: start: 20240221, end: 20250728
  27. BROMAZEPAM [Concomitant]
     Active Substance: BROMAZEPAM
     Dosage: 1 DOSAGE FORM, QD (1 CAPSULE / 24 H)
     Route: 048
     Dates: start: 20240221, end: 20250728
  28. BROMAZEPAM [Concomitant]
     Active Substance: BROMAZEPAM
     Dosage: 1 DOSAGE FORM, QD (1 CAPSULE / 24 H)
     Dates: start: 20240221, end: 20250728
  29. FAMOTIDINE [Concomitant]
     Active Substance: FAMOTIDINE
     Dosage: 1 DOSAGE FORM, QD (1 TABLET / 24 H)
     Dates: start: 20220608, end: 20250728
  30. FAMOTIDINE [Concomitant]
     Active Substance: FAMOTIDINE
     Dosage: 1 DOSAGE FORM, QD (1 TABLET / 24 H)
     Route: 048
     Dates: start: 20220608, end: 20250728
  31. FAMOTIDINE [Concomitant]
     Active Substance: FAMOTIDINE
     Dosage: 1 DOSAGE FORM, QD (1 TABLET / 24 H)
     Route: 048
     Dates: start: 20220608, end: 20250728
  32. FAMOTIDINE [Concomitant]
     Active Substance: FAMOTIDINE
     Dosage: 1 DOSAGE FORM, QD (1 TABLET / 24 H)
     Dates: start: 20220608, end: 20250728
  33. SOLIFENACIN [Concomitant]
     Active Substance: SOLIFENACIN
     Dosage: 1 DOSAGE FORM, QD (1 TABLET / 24 H)
     Dates: start: 20241219, end: 20250728
  34. SOLIFENACIN [Concomitant]
     Active Substance: SOLIFENACIN
     Dosage: 1 DOSAGE FORM, QD (1 TABLET / 24 H)
     Route: 048
     Dates: start: 20241219, end: 20250728
  35. SOLIFENACIN [Concomitant]
     Active Substance: SOLIFENACIN
     Dosage: 1 DOSAGE FORM, QD (1 TABLET / 24 H)
     Route: 048
     Dates: start: 20241219, end: 20250728
  36. SOLIFENACIN [Concomitant]
     Active Substance: SOLIFENACIN
     Dosage: 1 DOSAGE FORM, QD (1 TABLET / 24 H)
     Dates: start: 20241219, end: 20250728
  37. TAMSULOSIN HYDROCHLORIDE [Concomitant]
     Active Substance: TAMSULOSIN HYDROCHLORIDE
     Dosage: 1 DOSAGE FORM, QD (1 TABLET / 24 H)
     Dates: start: 20241211, end: 20250728
  38. TAMSULOSIN HYDROCHLORIDE [Concomitant]
     Active Substance: TAMSULOSIN HYDROCHLORIDE
     Dosage: 1 DOSAGE FORM, QD (1 TABLET / 24 H)
     Route: 048
     Dates: start: 20241211, end: 20250728
  39. TAMSULOSIN HYDROCHLORIDE [Concomitant]
     Active Substance: TAMSULOSIN HYDROCHLORIDE
     Dosage: 1 DOSAGE FORM, QD (1 TABLET / 24 H)
     Route: 048
     Dates: start: 20241211, end: 20250728
  40. TAMSULOSIN HYDROCHLORIDE [Concomitant]
     Active Substance: TAMSULOSIN HYDROCHLORIDE
     Dosage: 1 DOSAGE FORM, QD (1 TABLET / 24 H)
     Dates: start: 20241211, end: 20250728

REACTIONS (2)
  - Hyponatraemia [Recovered/Resolved]
  - Hypokalaemia [Recovered/Resolved]

NARRATIVE: CASE EVENT DATE: 20250415
